FAERS Safety Report 6366981-4 (Version None)
Quarter: 2009Q3

REPORT INFORMATION
  Report Type: 
  Country: None (occurrence: None)
  Receive Date: 20090921
  Receipt Date: 20090909
  Transmission Date: 20100115
  Serious: Yes (Hospitalization)
  Sender: FDA-Public Use
  Company Number: JP-JNJFOC-20090600379

PATIENT
  Sex: Female
  Weight: 65.1 kg

DRUGS (20)
  1. FENTANYL [Suspect]
     Indication: POST HERPETIC NEURALGIA
     Route: 062
  2. FENTANYL [Concomitant]
     Route: 062
  3. MECOBALAMIN [Concomitant]
     Indication: PAIN
     Route: 048
  4. GABALON [Concomitant]
     Indication: PAIN
     Route: 048
  5. OPALMON [Concomitant]
     Indication: PAIN
     Route: 048
  6. NEUROTROPIN [Concomitant]
     Indication: HYPERTENSION
     Route: 048
  7. BLOPRESS [Concomitant]
     Indication: HYPERTENSION
     Route: 048
  8. NORVASC [Concomitant]
     Indication: HYPERTENSION
     Route: 048
  9. NATRIX [Concomitant]
     Indication: HYPERTENSION
     Route: 048
  10. LIPITOR [Concomitant]
     Indication: HYPERLIPIDAEMIA
     Route: 048
  11. CARDENALIN [Concomitant]
     Indication: HYPERLIPIDAEMIA
     Route: 048
  12. MAGMITT [Concomitant]
     Indication: CONSTIPATION PROPHYLAXIS
     Route: 048
  13. GASTER D [Concomitant]
     Indication: GASTRITIS
     Route: 048
  14. JUVELA NICOTINATE [Concomitant]
     Indication: ARTERIOSCLEROSIS
     Route: 048
  15. NOVAMIN [Concomitant]
     Indication: PROPHYLAXIS OF NAUSEA AND VOMITING
     Route: 048
  16. PURSENNID [Concomitant]
     Indication: CONSTIPATION PROPHYLAXIS
     Route: 048
  17. MORPHINE HYDROCHLORIDE [Concomitant]
     Route: 048
  18. MORPHINE HYDROCHLORIDE [Concomitant]
     Indication: ANALGESIA
     Route: 048
  19. SELBEX [Concomitant]
     Indication: GASTRITIS PROPHYLAXIS
     Route: 048
  20. LEVOFLOXACIN [Concomitant]
     Indication: INFLAMMATION
     Route: 048

REACTIONS (1)
  - ASTHENIA [None]
